FAERS Safety Report 9477457 (Version 1)
Quarter: 2013Q3

REPORT INFORMATION
  Report Type: Spontaneous
  Country: FR (occurrence: FR)
  Receive Date: 20130826
  Receipt Date: 20130826
  Transmission Date: 20140515
  Serious: Yes (Other)
  Sender: FDA-Public Use
  Company Number: FR-ROCHE-1266090

PATIENT
  Sex: 0

DRUGS (2)
  1. ZELBORAF [Suspect]
     Indication: PRODUCT USED FOR UNKNOWN INDICATION
     Dosage: DRUG STOPPED
     Route: 065
  2. ZELBORAF [Suspect]
     Dosage: DRUG RE INTRODUCED AT HALF DOSE
     Route: 065

REACTIONS (1)
  - Blood creatinine increased [Unknown]
